FAERS Safety Report 21588980 (Version 2)
Quarter: 2023Q1

REPORT INFORMATION
  Report Type: Report from Study
  Country: US (occurrence: US)
  Receive Date: 20221114
  Receipt Date: 20230127
  Transmission Date: 20230418
  Serious: Yes (Other)
  Sender: FDA-Public Use
  Company Number: US-ABBVIE-22K-163-4236025-00

PATIENT
  Sex: Female

DRUGS (7)
  1. HUMIRA [Suspect]
     Active Substance: ADALIMUMAB
     Indication: Ankylosing spondylitis
     Dosage: CITRATE FREE DRUG START DATE AND STOP DATE_2022
     Route: 058
  2. HUMIRA [Suspect]
     Active Substance: ADALIMUMAB
     Dosage: CITRATE FREE,DRUG START DATE-15 JUL 2022 DRUG STOP DATE-2022
     Route: 058
  3. HUMIRA [Suspect]
     Active Substance: ADALIMUMAB
     Route: 058
     Dates: start: 2009
  4. PFIZER-BIONTECH COVID-19 VACCINE [Concomitant]
     Active Substance: TOZINAMERAN
     Indication: COVID-19 immunisation
     Dosage: TIME INTERVAL: 1 TOTAL
     Route: 030
  5. Amoxyclaw [Concomitant]
     Indication: Product used for unknown indication
  6. Amoxycilin [Concomitant]
     Indication: Product used for unknown indication
  7. PAXLOVID [Suspect]
     Active Substance: NIRMATRELVIR\RITONAVIR
     Indication: Product used for unknown indication
     Route: 065

REACTIONS (13)
  - Sinusitis [Unknown]
  - COVID-19 [Unknown]
  - Lip blister [Not Recovered/Not Resolved]
  - Blood iron decreased [Unknown]
  - Fatigue [Unknown]
  - Hypersensitivity [Recovering/Resolving]
  - Sinusitis [Recovered/Resolved]
  - Middle ear effusion [Unknown]
  - Bronchitis [Unknown]
  - Erythema [Unknown]
  - Adverse drug reaction [Unknown]
  - Sinusitis [Recovered/Resolved]
  - Ankylosing spondylitis [Unknown]

NARRATIVE: CASE EVENT DATE: 20200101
